FAERS Safety Report 16473379 (Version 1)
Quarter: 2019Q2

REPORT INFORMATION
  Report Type: Spontaneous
  Country: DE (occurrence: DE)
  Receive Date: 20190625
  Receipt Date: 20190625
  Transmission Date: 20190711
  Serious: Yes (Other)
  Sender: FDA-Public Use
  Company Number: DE-TEVA-2019-DE-1068243

PATIENT
  Age: 67 Year
  Sex: Female
  Weight: 68 kg

DRUGS (5)
  1. PACLITAXEL. [Suspect]
     Active Substance: PACLITAXEL
     Dosage: INFUSION SPEED 80 ML/H, 180 M INFUSION SPEED?80 ML/H, 180 ML/H, REACTION OCCURRED AFTER 10 MINUTES A
     Route: 042
     Dates: start: 20190603
  2. CLEMASTIN 2 MG [Concomitant]
     Indication: PREMEDICATION
     Dosage: PREMEDICATION 30 MIN. BEFORE CHEMOTHERAPY
     Route: 042
     Dates: start: 20190603
  3. ALOXI 0.25 MG [Concomitant]
     Route: 042
     Dates: start: 20190603
  4. RANITIDIN 50 MG [Concomitant]
     Indication: PREMEDICATION
     Dosage: PREMEDICATION 30 MIN. BEFORE CHEMOTHERAPY
     Route: 042
     Dates: start: 20190603
  5. DEXAMETHASON 8 MG [Concomitant]
     Indication: PREMEDICATION
     Dosage: PREMEDICATION 30 MIN. BEFORE CHEMOTHERAPY
     Route: 042
     Dates: start: 20190603

REACTIONS (7)
  - Blood pressure decreased [Recovered/Resolved]
  - Vomiting [Recovered/Resolved]
  - Restlessness [Recovered/Resolved]
  - Anal incontinence [Recovered/Resolved]
  - Nausea [Recovered/Resolved]
  - Loss of consciousness [Recovered/Resolved]
  - Frequent bowel movements [Recovered/Resolved]

NARRATIVE: CASE EVENT DATE: 20190603
